FAERS Safety Report 5480861-8 (Version None)
Quarter: 2007Q4

REPORT INFORMATION
  Report Type: 
  Country: None (occurrence: None)
  Receive Date: 20071004
  Receipt Date: 20070920
  Transmission Date: 20080405
  Serious: Yes (Death)
  Sender: FDA-Public Use
  Company Number: MPS1-10750

PATIENT
  Sex: Female
  Weight: 15 kg

DRUGS (2)
  1. ALDURAZYME [Suspect]
     Indication: MUCOPOLYSACCHARIDOSIS I
     Dosage: 1 MG/KG 1XW IV
     Route: 042
     Dates: start: 20060901, end: 20070916
  2. SUMAMED [Concomitant]

REACTIONS (8)
  - BRONCHITIS CHRONIC [None]
  - CONDITION AGGRAVATED [None]
  - CYANOSIS [None]
  - LOSS OF CONSCIOUSNESS [None]
  - NEUROLOGICAL SYMPTOM [None]
  - PNEUMONIA [None]
  - PROCEDURAL COMPLICATION [None]
  - RESPIRATORY FAILURE [None]
